FAERS Safety Report 5448511-4 (Version None)
Quarter: 2007Q3

REPORT INFORMATION
  Report Type: 
  Country: None (occurrence: None)
  Receive Date: 20070911
  Receipt Date: 20070830
  Transmission Date: 20080115
  Serious: Yes (Hospitalization)
  Sender: FDA-Public Use
  Company Number: CH-TYCO HEALTHCARE/MALLINCKRODT-T200701016

PATIENT

DRUGS (11)
  1. METHADOSE [Suspect]
     Indication: DRUG DEPENDENCE
     Dosage: 75 MG, BID
     Dates: end: 20060101
  2. TENOFOVIR DISOPROXIL FUMARATE [Concomitant]
     Indication: HIV INFECTION
     Dosage: 245 MG, QD
     Dates: start: 20040701
  3. DIDANOSINE [Concomitant]
     Indication: HIV INFECTION
     Dosage: 250 MG, QD
     Dates: start: 20040701
  4. FOSAMPRENAVIR [Concomitant]
     Indication: HIV INFECTION
     Dosage: 700 MG, BID
     Dates: start: 20040701
  5. LOPINAVIR W/RITONAVIR [Concomitant]
     Indication: HIV INFECTION
     Dosage: 400 MG/100 MG BID
     Dates: start: 20040701
  6. METHYLPHENIDATE HCL [Concomitant]
     Indication: DRUG DEPENDENCE
     Dosage: 20 MG, BID
  7. OXAZEPAM [Concomitant]
     Indication: ANXIETY DISORDER
     Dosage: 50 MG, QD
  8. PAROXETIN                          /00830801/ [Concomitant]
     Indication: ANXIETY DISORDER
     Dosage: 30 MG, QD
  9. TIPRANAVIR [Concomitant]
     Indication: HIV INFECTION
  10. NEVIRAPINE [Concomitant]
     Indication: HIV INFECTION
  11. LAMIVUDINE [Concomitant]
     Indication: HIV INFECTION

REACTIONS (7)
  - ABDOMINAL DISCOMFORT [None]
  - ASTHENIA [None]
  - BLOOD ELECTROLYTES DECREASED [None]
  - FATIGUE [None]
  - PALPITATIONS [None]
  - TORSADE DE POINTES [None]
  - WEIGHT DECREASED [None]
